FAERS Safety Report 25255145 (Version 3)
Quarter: 2025Q2

REPORT INFORMATION
  Report Type: Report from Study
  Country: JP (occurrence: JP)
  Receive Date: 20250430
  Receipt Date: 20250610
  Transmission Date: 20250716
  Serious: Yes (Hospitalization)
  Sender: EISAI
  Company Number: JP-Eisai-202501055_LEQ_P_1

PATIENT
  Age: 79 Year
  Sex: Female
  Weight: 47 kg

DRUGS (2)
  1. LEQEMBI [Suspect]
     Active Substance: LECANEMAB-IRMB
     Indication: Cognitive disorder
     Route: 041
     Dates: start: 20240301, end: 20240315
  2. LEQEMBI [Suspect]
     Active Substance: LECANEMAB-IRMB
     Route: 041
     Dates: start: 20240329, end: 20240329

REACTIONS (2)
  - Amyloid related imaging abnormality-oedema/effusion [Recovered/Resolved]
  - Cerebral haemorrhage [Recovered/Resolved]

NARRATIVE: CASE EVENT DATE: 20240418
